FAERS Safety Report 9703293 (Version 2)
Quarter: 2014Q1

REPORT INFORMATION
  Report Type: Spontaneous
  Country: US (occurrence: US)
  Receive Date: 20131122
  Receipt Date: 20140114
  Transmission Date: 20141002
  Serious: No
  Sender: FDA-Public Use
  Company Number: US-009507513-1311USA005267

PATIENT
  Age: 23 Year
  Sex: Female
  Weight: 70.3 kg

DRUGS (2)
  1. NEXPLANON [Suspect]
     Indication: CONTRACEPTION
     Dosage: UNK
     Route: 059
     Dates: start: 201207, end: 20131113
  2. NEXPLANON [Suspect]
     Dosage: UNK
     Dates: start: 20131113

REACTIONS (4)
  - Haemorrhage [Recovered/Resolved]
  - Rash [Not Recovered/Not Resolved]
  - Device kink [Recovered/Resolved]
  - Device breakage [Recovered/Resolved]
